FAERS Safety Report 8007548-1 (Version None)
Quarter: 2011Q4

REPORT INFORMATION
  Report Type: 
  Country: None (occurrence: None)
  Receive Date: 20111227
  Receipt Date: 20111216
  Transmission Date: 20120403
  Serious: Yes (Other)
  Sender: FDA-Public Use
  Company Number: US-BAYER-2011-078099

PATIENT
  Age: 25 Year
  Sex: Female
  Weight: 64.41 kg

DRUGS (1)
  1. MIRENA [Suspect]
     Indication: CONTRACEPTION
     Dosage: 20 MCG/24HR, CONT
     Route: 015
     Dates: start: 20110810, end: 20110817

REACTIONS (4)
  - DEVICE DIFFICULT TO USE [None]
  - PAIN [None]
  - UTERINE PERFORATION [None]
  - MEDICAL DEVICE COMPLICATION [None]
